FAERS Safety Report 9748373 (Version 5)
Quarter: 2014Q1

REPORT INFORMATION
  Report Type: Report from Study
  Country: US (occurrence: US)
  Receive Date: 20131212
  Receipt Date: 20140320
  Transmission Date: 20141002
  Serious: Yes (Life-Threatening, Hospitalization, Other)
  Sender: FDA-Public Use
  Company Number: US-BAYER-2013-135175

PATIENT
  Age: 80 Year
  Sex: Female
  Weight: 64.4 kg

DRUGS (40)
  1. RIOCIGUAT (GUANYLATE CYCLASE STIMULATOR) [Suspect]
     Dosage: 1 MG
     Dates: start: 20131002, end: 20131014
  2. RIOCIGUAT (GUANYLATE CYCLASE STIMULATOR) [Suspect]
     Dosage: 1.5 MG
     Dates: start: 20131014
  3. RIOCIGUAT (GUANYLATE CYCLASE STIMULATOR) [Suspect]
     Dosage: 2.0 MG
     Dates: start: 20131028, end: 20131101
  4. RIOCIGUAT (GUANYLATE CYCLASE STIMULATOR) [Suspect]
     Dosage: 1.5 MG
     Dates: start: 20131101, end: 20131102
  5. ASPIRIN [Concomitant]
     Indication: CORONARY ARTERY DISEASE
     Dosage: 81 MG, QD
     Route: 048
     Dates: start: 20040601, end: 20131102
  6. ASPIRIN [Concomitant]
     Indication: CORONARY ARTERY DISEASE
     Dosage: 81 MG, QD
     Route: 048
     Dates: start: 20131105
  7. LIPITOR [Concomitant]
     Indication: HYPERLIPIDAEMIA
     Dosage: 40 MG, QD
     Route: 048
     Dates: start: 2007
  8. OSCAL [Concomitant]
     Indication: PROPHYLAXIS
     Dosage: 1500MG CA/600MG VITAMIN D QD
     Route: 048
     Dates: start: 2003
  9. TRACLEER [Concomitant]
     Indication: PULMONARY HYPERTENSION
     Dosage: 125 MG, BID
     Route: 048
     Dates: start: 200407, end: 20130919
  10. TRACLEER [Concomitant]
     Indication: PULMONARY HYPERTENSION
     Dosage: 125 MG, BID
     Route: 048
     Dates: start: 20131105
  11. CARVEDILOL [Concomitant]
     Indication: HYPERTENSION
     Dosage: 25 MG, BID
     Route: 048
     Dates: start: 2007, end: 20131102
  12. CARVEDILOL [Concomitant]
     Indication: HYPERTENSION
     Dosage: 3.125 MG, BID
     Route: 048
     Dates: start: 20131106, end: 20131107
  13. CARVEDILOL [Concomitant]
     Indication: HYPERTENSION
     Dosage: 12.5 MG, BID
     Route: 048
     Dates: start: 20131107, end: 20131112
  14. CARVEDILOL [Concomitant]
     Indication: HYPERTENSION
     Dosage: 25 MG, BID
     Route: 048
     Dates: start: 20131112
  15. LASIX [Concomitant]
     Indication: PULMONARY HYPERTENSION
     Dosage: 20 MG, QD
     Route: 048
     Dates: start: 2004, end: 20131102
  16. LASIX [Concomitant]
     Indication: PULMONARY HYPERTENSION
     Dosage: 20 MG, BID
     Route: 042
     Dates: start: 20131103, end: 20131103
  17. LASIX [Concomitant]
     Indication: PULMONARY HYPERTENSION
     Dosage: 20 MG, QD
     Route: 048
     Dates: start: 20131107
  18. SYNTHROID [Concomitant]
     Indication: HYPOTHYROIDISM
     Dosage: 75 ?G, QD
     Route: 048
     Dates: start: 2000
  19. ALDACTONE [POTASSIUM CANRENOATE] [Concomitant]
     Indication: PULMONARY HYPERTENSION
     Dosage: DAILY DOSE 25 MG
     Route: 048
     Dates: start: 2004
  20. ADCIRCA [Concomitant]
     Indication: PULMONARY HYPERTENSION
     Dosage: 40 MG, QD
     Route: 048
     Dates: start: 20120314, end: 20130921
  21. ADCIRCA [Concomitant]
     Indication: PULMONARY HYPERTENSION
     Dosage: 40 MG, QD
     Route: 048
     Dates: start: 20131108
  22. COUMADIN [Concomitant]
     Indication: PULMONARY HYPERTENSION
     Dosage: 4 MG, QD
     Route: 048
     Dates: start: 2004, end: 20131024
  23. COUMADIN [Concomitant]
     Indication: PULMONARY HYPERTENSION
     Dosage: UNK
     Route: 048
     Dates: start: 20131025
  24. COUMADIN [Concomitant]
     Indication: PULMONARY HYPERTENSION
     Dosage: 3 MG, QD
     Route: 048
     Dates: start: 20131026, end: 20131102
  25. COUMADIN [Concomitant]
     Indication: PULMONARY HYPERTENSION
     Dosage: 3 MG, QD
     Route: 048
     Dates: start: 20131104, end: 20131104
  26. COUMADIN [Concomitant]
     Indication: PULMONARY HYPERTENSION
     Dosage: 4 MG, QD
     Route: 048
     Dates: start: 20131105, end: 20131105
  27. COUMADIN [Concomitant]
     Indication: PULMONARY HYPERTENSION
     Dosage: 3 MG, QD
     Route: 048
     Dates: start: 20131106
  28. LOVENOX [Concomitant]
     Indication: PULMONARY HYPERTENSION
     Dosage: 60 MG, BID
     Route: 058
     Dates: start: 20130929, end: 20131002
  29. MULTIVITAMIN [Concomitant]
     Indication: SUPPLEMENTATION THERAPY
     Dosage: 1 TAB. QD
     Route: 048
     Dates: start: 2003
  30. ALEVE TABLET [Concomitant]
     Indication: ARTHRALGIA
     Dosage: 220 MG,QD, PRN
     Route: 048
     Dates: start: 20131012
  31. CORTISONE [Concomitant]
     Indication: ARTHRALGIA
     Dosage: 50 MG, ONCE
     Route: 014
     Dates: start: 20131029, end: 20131029
  32. OXYGEN [Concomitant]
     Indication: DYSPNOEA
     Dosage: 2 L/MIN
     Route: 055
     Dates: start: 20131102, end: 20131107
  33. MORPHINE [Concomitant]
     Indication: PAIN
     Dosage: 1-2 MG, PRN
     Route: 042
     Dates: start: 20131103, end: 20131104
  34. DOXYCYCLINE [Concomitant]
     Indication: URINARY TRACT INFECTION
     Dosage: 100 MG, BID
     Route: 042
     Dates: start: 20131103, end: 20131107
  35. ACETAMINOPHEN [Concomitant]
     Indication: PAIN
     Dosage: 325 MG, QID, PRN
     Route: 048
     Dates: start: 20131105, end: 20131107
  36. MAGNESIUM SULFATE [Concomitant]
     Indication: HYPOMAGNESAEMIA
     Dosage: 2 G, ONCE
     Route: 042
     Dates: start: 20131106, end: 20131106
  37. POTASSIUM CHLORIDE [Concomitant]
     Indication: HYPOKALAEMIA
     Dosage: 10 MEQ, ONCE
     Route: 048
     Dates: start: 20131106, end: 20131106
  38. MACROBID [Concomitant]
     Indication: URINARY TRACT INFECTION
     Dosage: 100 MG, BID
     Route: 048
     Dates: start: 20131031, end: 20131102
  39. SALINE [Concomitant]
     Indication: HAEMORRHAGE PROPHYLAXIS
     Dosage: 2 SPRAYS, TID, PRN
     Route: 045
     Dates: start: 20131107
  40. TUSSIN DM [Concomitant]
     Indication: COUGH
     Dosage: 5 ML, Q4HR, PRN
     Route: 048
     Dates: start: 20131031

REACTIONS (5)
  - International normalised ratio increased [Recovered/Resolved]
  - Pneumonia [Recovered/Resolved]
  - Epistaxis [Recovered/Resolved]
  - Hypotension [Recovered/Resolved]
  - Anaemia [Recovered/Resolved]
